FAERS Safety Report 25417493 (Version 1)
Quarter: 2025Q2

REPORT INFORMATION
  Report Type: Spontaneous
  Country: US (occurrence: US)
  Receive Date: 20250610
  Receipt Date: 20250610
  Transmission Date: 20250716
  Serious: No
  Sender: MYLAN
  Company Number: US-MYLANLABS-2025M1046126

PATIENT
  Sex: Female

DRUGS (2)
  1. ESTRADIOL TRANSDERMAL SYSTEM [Suspect]
     Active Substance: ESTRADIOL
     Indication: Menopausal symptoms
     Dosage: 0.0375 MILLIGRAM, QD (PER DAY, TWICE WEEKLY)
  2. PROGESTERONE [Concomitant]
     Active Substance: PROGESTERONE

REACTIONS (1)
  - Product use issue [Unknown]
